FAERS Safety Report 4935794-X (Version None)
Quarter: 2006Q1

REPORT INFORMATION
  Report Type: 
  Country: None (occurrence: None)
  Receive Date: 20060307
  Receipt Date: 20051214
  Transmission Date: 20060701
  Serious: Yes (Other)
  Sender: FDA-Public Use
  Company Number: US-GLAXOSMITHKLINE-A0585869A

PATIENT
  Age: 66 Year
  Sex: Female
  Weight: 70.5 kg

DRUGS (4)
  1. REQUIP [Suspect]
     Indication: RESTLESS LEGS SYNDROME
     Dosage: .5MG PER DAY
     Route: 048
     Dates: start: 20051101
  2. LOPRESSOR [Concomitant]
     Indication: HYPERTENSION
     Dosage: 50MG TWICE PER DAY
     Route: 048
  3. PLAVIX [Concomitant]
     Dosage: 75MG PER DAY
     Route: 048
  4. PRAVACHOL [Concomitant]
     Indication: BLOOD CHOLESTEROL INCREASED
     Dosage: 80MG AT NIGHT
     Route: 048

REACTIONS (1)
  - ANGINA PECTORIS [None]
